FAERS Safety Report 23336220 (Version 1)
Quarter: 2023Q4

REPORT INFORMATION
  Report Type: Other
  Country: JP (occurrence: JP)
  Receive Date: 20231225
  Receipt Date: 20231225
  Transmission Date: 20240109
  Serious: Yes (Other)
  Sender: FDA-Public Use
  Company Number: JP-CHUGAI-2023043425

PATIENT
  Age: 71 Year
  Sex: Female
  Weight: 42.9 kg

DRUGS (11)
  1. POLIVY [Suspect]
     Active Substance: POLATUZUMAB VEDOTIN-PIIQ
     Indication: Diffuse large B-cell lymphoma
     Dosage: 75 MILLIGRAM
     Route: 065
     Dates: start: 20231127, end: 20231127
  2. POLIVY [Suspect]
     Active Substance: POLATUZUMAB VEDOTIN-PIIQ
     Dosage: 70 MILLIGRAM
     Route: 065
     Dates: start: 20231212, end: 20231212
  3. RITUXIMAB [Suspect]
     Active Substance: RITUXIMAB
     Indication: Diffuse large B-cell lymphoma
     Dosage: 540 MILLIGRAM
     Route: 065
     Dates: start: 20231124, end: 20231124
  4. RITUXIMAB [Suspect]
     Active Substance: RITUXIMAB
     Dosage: 530 MILLIGRAM
     Route: 065
     Dates: start: 20231211, end: 20231211
  5. CYCLOPHOSPHAMIDE [Suspect]
     Active Substance: CYCLOPHOSPHAMIDE
     Indication: Diffuse large B-cell lymphoma
     Dosage: 1050 MILLIGRAM
     Route: 065
     Dates: start: 20231120, end: 20231120
  6. CYCLOPHOSPHAMIDE [Suspect]
     Active Substance: CYCLOPHOSPHAMIDE
     Dosage: 1000 MILLIGRAM
     Route: 065
     Dates: start: 20231212, end: 20231212
  7. DOXORUBICIN HYDROCHLORIDE [Suspect]
     Active Substance: DOXORUBICIN HYDROCHLORIDE
     Indication: Diffuse large B-cell lymphoma
     Dosage: 70 MILLIGRAM
     Route: 065
     Dates: start: 20231120, end: 20231120
  8. DOXORUBICIN HYDROCHLORIDE [Suspect]
     Active Substance: DOXORUBICIN HYDROCHLORIDE
     Dosage: 65 MILLIGRAM
     Route: 065
     Dates: start: 20231212, end: 20231212
  9. PREDNISOLONE [Suspect]
     Active Substance: PREDNISOLONE
     Indication: Diffuse large B-cell lymphoma
     Dosage: 100 MILLIGRAM
     Route: 065
     Dates: start: 20231116, end: 20231120
  10. PREDNISOLONE [Suspect]
     Active Substance: PREDNISOLONE
     Dosage: 16/DEC/2023
     Route: 065
     Dates: start: 20231212
  11. FILGRASTIM [Concomitant]
     Active Substance: FILGRASTIM

REACTIONS (8)
  - Decreased appetite [Recovering/Resolving]
  - White blood cell count decreased [Not Recovered/Not Resolved]
  - Anaemia [Not Recovered/Not Resolved]
  - Neutrophil count decreased [Not Recovered/Not Resolved]
  - Platelet count decreased [Recovering/Resolving]
  - Shock [Recovering/Resolving]
  - Hypoalbuminaemia [Recovering/Resolving]
  - Febrile neutropenia [Recovering/Resolving]

NARRATIVE: CASE EVENT DATE: 20231127
